FAERS Safety Report 4463487-4 (Version None)
Quarter: 2004Q3

REPORT INFORMATION
  Report Type: 
  Country: None (occurrence: None)
  Receive Date: 20040928
  Receipt Date: 20040914
  Transmission Date: 20050211
  Serious: No
  Sender: FDA-Public Use
  Company Number: 04H-044-0274105-00

PATIENT
  Weight: 57 kg

DRUGS (4)
  1. SUCCINYLCHOLINE CHLORIDE [Suspect]
     Indication: ANAESTHESIA
     Dosage: 100 MG, ONCE DURING EACH SURGERY
  2. FENTANYL [Suspect]
     Indication: INDUCTION OF ANAESTHESIA
     Dosage: 0.15 MG DURING 1ST SURGERY ; 0.1 MG DURING 2ND SURGERY
  3. PANCURONIUM [Concomitant]
  4. THIOPENTAL SODIUM [Concomitant]

REACTIONS (2)
  - BRADYCARDIA [None]
  - DRUG INTERACTION [None]
